FAERS Safety Report 7018207-6 (Version None)
Quarter: 2010Q3

REPORT INFORMATION
  Report Type: 
  Country: None (occurrence: None)
  Receive Date: 20100928
  Receipt Date: 20100917
  Transmission Date: 20110219
  Serious: No
  Sender: FDA-Public Use
  Company Number: KR-JNJFOC-20100808092

PATIENT
  Age: 55 Year
  Sex: Female

DRUGS (3)
  1. DURAGESIC-100 [Suspect]
     Indication: PAIN MANAGEMENT
     Dosage: HALF A PATCH OF 12.5 UG/HR
     Route: 062
  2. DURAGESIC-100 [Suspect]
     Route: 062
  3. MOTILIUM-M [Suspect]
     Indication: ANTIEMETIC SUPPORTIVE CARE
     Route: 048

REACTIONS (5)
  - CONSTIPATION [None]
  - DYSURIA [None]
  - NAUSEA [None]
  - VOMITING [None]
  - WRONG TECHNIQUE IN DRUG USAGE PROCESS [None]
